FAERS Safety Report 25109723 (Version 2)
Quarter: 2025Q1

REPORT INFORMATION
  Report Type: Report from Study
  Country: ES (occurrence: ES)
  Receive Date: 20250323
  Receipt Date: 20250326
  Transmission Date: 20250408
  Serious: Yes (Death, Hospitalization, Other)
  Sender: ABBVIE
  Company Number: ES-ABBVIE-6192589

PATIENT
  Age: 77 Year

DRUGS (1)
  1. CARBIDOPA\LEVODOPA [Suspect]
     Active Substance: CARBIDOPA\LEVODOPA
     Indication: Parkinson^s disease
     Route: 058
     Dates: start: 20250217

REACTIONS (2)
  - Urinary tract infection [Fatal]
  - Blood test abnormal [Unknown]

NARRATIVE: CASE EVENT DATE: 20250101
